FAERS Safety Report 5823260-9 (Version None)
Quarter: 2008Q3

REPORT INFORMATION
  Report Type: 
  Country: None (occurrence: None)
  Receive Date: 20080724
  Receipt Date: 20080724
  Transmission Date: 20090109
  Serious: Yes (Hospitalization)
  Sender: FDA-Public Use
  Company Number: None

PATIENT
  Age: 60 Year
  Sex: Male

DRUGS (2)
  1. LOVASTATIN [Suspect]
     Indication: ALCOHOL ABUSE
     Dosage: 80 MG EVERYDAY PO
     Route: 048
     Dates: start: 20020515, end: 20080719
  2. LOVASTATIN [Suspect]
     Indication: HYPERLIPIDAEMIA
     Dosage: 80 MG EVERYDAY PO
     Route: 048
     Dates: start: 20020515, end: 20080719

REACTIONS (12)
  - BLOOD TESTOSTERONE DECREASED [None]
  - CHROMATURIA [None]
  - ERECTILE DYSFUNCTION [None]
  - FATIGUE [None]
  - GENERAL PHYSICAL HEALTH DETERIORATION [None]
  - INSOMNIA [None]
  - INTERVERTEBRAL DISC PROTRUSION [None]
  - LOSS OF LIBIDO [None]
  - MUSCULAR WEAKNESS [None]
  - MYALGIA [None]
  - PAIN IN EXTREMITY [None]
  - STRESS [None]
